FAERS Safety Report 22626798 (Version 1)
Quarter: 2023Q2

REPORT INFORMATION
  Report Type: Report from Study
  Country: RO (occurrence: RO)
  Receive Date: 20230622
  Receipt Date: 20230622
  Transmission Date: 20230722
  Serious: Yes (Life-Threatening, Hospitalization)
  Sender: FDA-Public Use
  Company Number: RO-JNJFOC-20230639741

PATIENT
  Age: 54 Year
  Sex: Female
  Weight: 89 kg

DRUGS (1)
  1. TECVAYLI [Suspect]
     Active Substance: TECLISTAMAB-CQYV
     Indication: Plasma cell myeloma refractory
     Route: 058
     Dates: start: 20221012

REACTIONS (3)
  - Hypogammaglobulinaemia [Recovering/Resolving]
  - Pneumonia [Recovered/Resolved]
  - Anaemia [Unknown]

NARRATIVE: CASE EVENT DATE: 20221114
